FAERS Safety Report 5620967-3 (Version None)
Quarter: 2008Q1

REPORT INFORMATION
  Report Type: 
  Country: None (occurrence: None)
  Receive Date: 20080208
  Receipt Date: 20080129
  Transmission Date: 20080703
  Serious: Yes (Other)
  Sender: FDA-Public Use
  Company Number: US-PFIZER INC-2008009671

PATIENT
  Sex: Male
  Weight: 110 kg

DRUGS (2)
  1. NAVANE [Suspect]
     Indication: SCHIZOPHRENIA
  2. PAMELOR [Concomitant]

REACTIONS (4)
  - BARRETT'S OESOPHAGUS [None]
  - HEPATIC ENZYME INCREASED [None]
  - SINUS OPERATION [None]
  - SINUSITIS [None]
